FAERS Safety Report 13909749 (Version 1)
Quarter: 2017Q3

REPORT INFORMATION
  Report Type: Spontaneous
  Country: US (occurrence: US)
  Receive Date: 20170828
  Receipt Date: 20170828
  Transmission Date: 20171127
  Serious: No
  Sender: FDA-Public Use
  Company Number: US-ENDO PHARMACEUTICALS INC-2017-002856

PATIENT
  Sex: Female
  Weight: 62.6 kg

DRUGS (3)
  1. CRESTOR [Concomitant]
     Active Substance: ROSUVASTATIN CALCIUM
     Indication: BLOOD CHOLESTEROL
  2. PROTONIX [Concomitant]
     Active Substance: PANTOPRAZOLE SODIUM
     Indication: GASTRIC DISORDER
  3. PREDNISONE TABLETS [Suspect]
     Active Substance: PREDNISONE
     Indication: ERYTHEMA
     Dosage: UNK UNK, UNKNOWN
     Route: 065
     Dates: start: 20170411, end: 20170416

REACTIONS (3)
  - Off label use [Unknown]
  - Insomnia [Unknown]
  - Flushing [Unknown]
